FAERS Safety Report 5505371-0 (Version None)
Quarter: 2007Q4

REPORT INFORMATION
  Report Type: 
  Country: None (occurrence: None)
  Receive Date: 20071102
  Receipt Date: 20071023
  Transmission Date: 20080405
  Serious: Yes (Disabling)
  Sender: FDA-Public Use
  Company Number: JP-ELI_LILLY_AND_COMPANY-JP200710007451

PATIENT
  Age: 64 Year
  Sex: Female

DRUGS (2)
  1. GEMZAR [Suspect]
     Indication: GALLBLADDER CANCER
     Dosage: 1400 MG, OTHER
     Route: 042
  2. GEMZAR [Suspect]
     Dosage: 1000 MG, OTHER
     Route: 042

REACTIONS (1)
  - PO2 DECREASED [None]
